FAERS Safety Report 21342436 (Version 1)
Quarter: 2022Q3

REPORT INFORMATION
  Report Type: Report from Study
  Country: US (occurrence: US)
  Receive Date: 20220916
  Receipt Date: 20220916
  Transmission Date: 20221027
  Serious: No
  Sender: FDA-Public Use
  Company Number: US-KYOWAKIRIN-2022BKK014509

PATIENT

DRUGS (2)
  1. NOURIANZ [Suspect]
     Active Substance: ISTRADEFYLLINE
     Indication: Parkinson^s disease
     Dosage: 20 MG, QD
     Route: 048
     Dates: start: 202208
  2. NOURIANZ [Suspect]
     Active Substance: ISTRADEFYLLINE
     Indication: Psychotic disorder

REACTIONS (4)
  - Somnolence [Unknown]
  - Bradyphrenia [Unknown]
  - Tremor [Unknown]
  - Somnolence [Unknown]
